FAERS Safety Report 25597446 (Version 1)
Quarter: 2025Q3

REPORT INFORMATION
  Report Type: Spontaneous
  Country: EU (occurrence: EU)
  Receive Date: 20250723
  Receipt Date: 20250723
  Transmission Date: 20251021
  Serious: Yes (Other)
  Sender: PURDUE
  Company Number: EU-PURDUE-USA-2025-0319130

PATIENT
  Age: 54 Year
  Sex: Male
  Weight: 67.4 kg

DRUGS (15)
  1. OXYCODONE HYDROCHLORIDE [Suspect]
     Active Substance: OXYCODONE HYDROCHLORIDE
     Indication: Pain
     Dosage: 0.5 MILLIGRAM, Q1H
     Route: 042
     Dates: start: 20250621, end: 20250624
  2. AMOXICILLIN [Suspect]
     Active Substance: AMOXICILLIN
     Indication: Central nervous system abscess
     Route: 042
     Dates: start: 20250619, end: 20250619
  3. AMOXICILLIN [Suspect]
     Active Substance: AMOXICILLIN
     Dosage: 12 GRAM, DAILY
     Route: 042
     Dates: start: 20250619, end: 20250624
  4. CEFOTAXIME [Suspect]
     Active Substance: CEFOTAXIME SODIUM
     Indication: Central nervous system abscess
     Dosage: 6 GRAM, DAILY
     Route: 042
     Dates: start: 20250618, end: 20250619
  5. CEFOTAXIME [Suspect]
     Active Substance: CEFOTAXIME SODIUM
     Dosage: 12 GRAM, DAILY
     Route: 042
     Dates: start: 20250619, end: 20250623
  6. CEFOTAXIME [Suspect]
     Active Substance: CEFOTAXIME SODIUM
     Dosage: 16 GRAM, DAILY
     Route: 042
     Dates: start: 20250624, end: 20250625
  7. CEFOTAXIME [Suspect]
     Active Substance: CEFOTAXIME SODIUM
     Dosage: 4 GRAM, DAILY
     Route: 042
     Dates: start: 20250627, end: 20250628
  8. METRONIDAZOLE [Suspect]
     Active Substance: METRONIDAZOLE
     Indication: Central nervous system abscess
     Dosage: 1500 MILLIGRAM, DAILY
     Route: 042
     Dates: start: 20250618, end: 20250624
  9. TAMSULOSIN HYDROCHLORIDE [Suspect]
     Active Substance: TAMSULOSIN HYDROCHLORIDE
     Indication: Urinary retention
     Dosage: 0.4 MILLIGRAM, DAILY
     Route: 048
     Dates: start: 20250621, end: 20250624
  10. ACETAMINOPHEN [Suspect]
     Active Substance: ACETAMINOPHEN
     Indication: Pain
     Dosage: 1 GRAM, DAILY
     Route: 042
     Dates: start: 20250618, end: 20250618
  11. ACETAMINOPHEN [Suspect]
     Active Substance: ACETAMINOPHEN
     Dosage: 1.5 GRAM, DAILY
     Route: 042
     Dates: start: 20250619, end: 20250619
  12. ACETAMINOPHEN [Suspect]
     Active Substance: ACETAMINOPHEN
     Dosage: 3 GRAM, DAILY
     Route: 042
     Dates: start: 20250620, end: 20250620
  13. ACETAMINOPHEN [Suspect]
     Active Substance: ACETAMINOPHEN
     Dosage: 1 GRAM, DAILY
     Route: 042
     Dates: start: 20250621, end: 20250621
  14. ACETAMINOPHEN [Suspect]
     Active Substance: ACETAMINOPHEN
     Dosage: 1 GRAM, DAILY
     Route: 042
     Dates: start: 20250624, end: 20250625
  15. TRAMADOL HYDROCHLORIDE [Suspect]
     Active Substance: TRAMADOL HYDROCHLORIDE
     Indication: Pain
     Dosage: 200 MILLIGRAM, DAILY
     Route: 042
     Dates: start: 20250619, end: 20250621

REACTIONS (1)
  - Hepatic cytolysis [Recovering/Resolving]

NARRATIVE: CASE EVENT DATE: 20250623
